FAERS Safety Report 12631265 (Version 2)
Quarter: 2016Q3

REPORT INFORMATION
  Report Type: Spontaneous
  Country: US (occurrence: US)
  Receive Date: 20160808
  Receipt Date: 20160808
  Transmission Date: 20161109
  Serious: No
  Sender: FDA-Public Use
  Company Number: US-BEH-2015053098

PATIENT
  Sex: Female
  Weight: 83 kg

DRUGS (32)
  1. MUCINEX [Concomitant]
     Active Substance: GUAIFENESIN
  2. NITROFURANTOIN. [Concomitant]
     Active Substance: NITROFURANTOIN
  3. HIZENTRA [Suspect]
     Active Substance: HUMAN IMMUNOGLOBULIN G
     Indication: IMMUNODEFICIENCY COMMON VARIABLE
     Dosage: 4 GM 20 ML VIL
     Route: 058
  4. DIPHENHYDRAMINE. [Concomitant]
     Active Substance: DIPHENHYDRAMINE
  5. ALBUTEROL. [Concomitant]
     Active Substance: ALBUTEROL
  6. LOVAZA [Concomitant]
     Active Substance: OMEGA-3-ACID ETHYL ESTERS
  7. IBUPROFEN. [Concomitant]
     Active Substance: IBUPROFEN
  8. LIDOCAINE PRILOCAINE [Concomitant]
     Active Substance: LIDOCAINE\PRILOCAINE
  9. VERAMYST [Concomitant]
     Active Substance: FLUTICASONE FUROATE
  10. TYLENOL [Concomitant]
     Active Substance: ACETAMINOPHEN
  11. VITAMIN B [Concomitant]
     Active Substance: VITAMIN B
  12. FLOVENT [Concomitant]
     Active Substance: FLUTICASONE PROPIONATE
  13. MECLIZINE [Concomitant]
     Active Substance: MECLIZINE HYDROCHLORIDE
  14. LIDOCAINE. [Concomitant]
     Active Substance: LIDOCAINE
  15. FIORICET [Concomitant]
     Active Substance: ACETAMINOPHEN\BUTALBITAL\CAFFEINE
  16. ISOMETHEPT DICHLORALP ACETAMIN [Concomitant]
  17. PROAIR HFA [Concomitant]
     Active Substance: ALBUTEROL SULFATE
  18. MULTIVITAMIN [Concomitant]
     Active Substance: VITAMINS
  19. EPIPEN [Concomitant]
     Active Substance: EPINEPHRINE
     Indication: ANAPHYLACTIC REACTION
  20. ALLEGRA [Concomitant]
     Active Substance: FEXOFENADINE HYDROCHLORIDE
  21. DIGESTIVE PROBIOTIC [Concomitant]
  22. ZOVIRAX [Concomitant]
     Active Substance: ACYCLOVIR
  23. HIZENTRA [Suspect]
     Active Substance: HUMAN IMMUNOGLOBULIN G
     Indication: HYPOGAMMAGLOBULINAEMIA
     Dosage: 4 GM 20 ML VIL
     Route: 058
  24. VERAPAMIL [Concomitant]
     Active Substance: VERAPAMIL HYDROCHLORIDE
  25. MAGNESIUM [Concomitant]
     Active Substance: MAGNESIUM
  26. LORAZEPAM. [Concomitant]
     Active Substance: LORAZEPAM
  27. ADVAIR HFA [Concomitant]
     Active Substance: FLUTICASONE PROPIONATE\SALMETEROL XINAFOATE
  28. OMEGA 3 FISH OIL [Concomitant]
     Active Substance: FISH OIL\OMEGA-3 FATTY ACIDS
  29. PRAVASTATIN. [Concomitant]
     Active Substance: PRAVASTATIN
  30. ACYCLOVIR. [Concomitant]
     Active Substance: ACYCLOVIR
  31. AMITRIPTYLINE [Concomitant]
     Active Substance: AMITRIPTYLINE
  32. VITAMIN B12 [Concomitant]
     Active Substance: CYANOCOBALAMIN

REACTIONS (1)
  - Migraine [Recovered/Resolved]
